FAERS Safety Report 6786370-8 (Version None)
Quarter: 2010Q2

REPORT INFORMATION
  Report Type: 
  Country: None (occurrence: None)
  Receive Date: 20100623
  Receipt Date: 20100610
  Transmission Date: 20101027
  Serious: Yes (Other)
  Sender: FDA-Public Use
  Company Number: PHHY2010SI38115

PATIENT
  Sex: Male

DRUGS (5)
  1. ZOLEDRONATE T29581+ [Suspect]
     Dosage: 4 MG EVERY 28 DAYS
     Route: 042
     Dates: start: 20090211
  2. BICALUTAMIDE [Concomitant]
     Dosage: 1 DF, QD
     Dates: start: 20081010
  3. CONTROLOC [Concomitant]
     Dosage: 1 DF, QD
     Dates: start: 20091014
  4. IBUPROFEN [Concomitant]
     Dosage: UNK
     Dates: start: 20090801
  5. PALLADONE [Concomitant]
     Dosage: 2 DF, QD
     Dates: start: 20091105

REACTIONS (3)
  - BLOOD CALCIUM DECREASED [None]
  - HAEMOGLOBIN DECREASED [None]
  - INTESTINAL HAEMORRHAGE [None]
